FAERS Safety Report 24670780 (Version 1)
Quarter: 2024Q4

REPORT INFORMATION
  Report Type: Spontaneous
  Country: US (occurrence: US)
  Receive Date: 20241127
  Receipt Date: 20241127
  Transmission Date: 20250114
  Serious: No
  Sender: KYOWA
  Company Number: US-KYOWAKIRIN-2024KK026767

PATIENT

DRUGS (2)
  1. CRYSVITA [Suspect]
     Active Substance: BUROSUMAB-TWZA
     Indication: Hereditary hypophosphataemic rickets
     Dosage: 80 MG, 1X/4 WEEKS (UNDER THE SKIN)
     Route: 065
     Dates: start: 201908
  2. CRYSVITA [Suspect]
     Active Substance: BUROSUMAB-TWZA
     Indication: Hereditary hypophosphataemic rickets
     Dosage: 80 MG, 1X/4 WEEKS (UNDER THE SKIN)
     Route: 065
     Dates: start: 201908

REACTIONS (1)
  - Glomerular filtration rate decreased [Unknown]
